FAERS Safety Report 6185256-X (Version None)
Quarter: 2009Q2

REPORT INFORMATION
  Report Type: 
  Country: None (occurrence: None)
  Receive Date: 20090511
  Receipt Date: 20090430
  Transmission Date: 20091009
  Serious: Yes (Hospitalization, Other)
  Sender: FDA-Public Use
  Company Number: US-ROCHE-505091

PATIENT
  Sex: Male
  Weight: 63.5 kg

DRUGS (2)
  1. ACCUTANE [Suspect]
     Indication: ACNE
     Route: 065
     Dates: start: 20010604, end: 20010831
  2. ACCUTANE [Suspect]
     Route: 065
     Dates: start: 20010831, end: 20011001

REACTIONS (19)
  - ANXIETY [None]
  - BLOOD CREATININE INCREASED [None]
  - CARDIOMEGALY [None]
  - CHEST PAIN [None]
  - CHRONIC FATIGUE SYNDROME [None]
  - DEPRESSION [None]
  - GASTROOESOPHAGEAL REFLUX DISEASE [None]
  - HELICOBACTER GASTRITIS [None]
  - HYPERTENSION [None]
  - INSOMNIA [None]
  - MULTI-ORGAN FAILURE [None]
  - MUSCLE STRAIN [None]
  - RENAL FAILURE [None]
  - RENAL FAILURE CHRONIC [None]
  - RENAL TRANSPLANT [None]
  - SCOLIOSIS [None]
  - SINUS TACHYCARDIA [None]
  - STRESS [None]
  - SUICIDAL IDEATION [None]
